FAERS Safety Report 6645229-7 (Version None)
Quarter: 2010Q1

REPORT INFORMATION
  Report Type: 
  Country: None (occurrence: None)
  Receive Date: 20100322
  Receipt Date: 20100317
  Transmission Date: 20100710
  Serious: Yes (Other)
  Sender: FDA-Public Use
  Company Number: GB-ABBOTT-10P-167-0632877-00

PATIENT
  Sex: Female

DRUGS (2)
  1. EPILIM CHRONO [Suspect]
     Indication: CONVULSION
     Route: 048
     Dates: start: 20070101
  2. ANTIDEPRESSANTS [Suspect]
     Indication: DEPRESSION
     Route: 048

REACTIONS (1)
  - BLINDNESS [None]
